FAERS Safety Report 10196764 (Version 1)
Quarter: 2014Q2

REPORT INFORMATION
  Report Type: Spontaneous
  Country: US (occurrence: US)
  Receive Date: 20140527
  Receipt Date: 20140527
  Transmission Date: 20141212
  Serious: Yes (Other)
  Sender: FDA-Public Use
  Company Number: US-WATSON-2014-10389

PATIENT
  Age: 49 Year
  Sex: Male

DRUGS (2)
  1. BUPROPION HYDROCHLORIDE (WATSON LABORATORIES) [Suspect]
     Indication: DEPRESSION
     Dosage: 4-10 OR 12 A DAY
     Route: 045
  2. BUPROPION HYDROCHLORIDE (WATSON LABORATORIES) [Suspect]
     Indication: DRUG ABUSE
     Dosage: 100 MG, BID
     Route: 065

REACTIONS (5)
  - Hallucination, auditory [Recovered/Resolved]
  - Sleep disorder [Unknown]
  - Drug dependence [Unknown]
  - Intentional product misuse [Recovered/Resolved]
  - Drug abuse [Unknown]
